FAERS Safety Report 17410017 (Version 2)
Quarter: 2020Q1

REPORT INFORMATION
  Report Type: Spontaneous
  Country: BE (occurrence: BE)
  Receive Date: 20200212
  Receipt Date: 20200227
  Transmission Date: 20200409
  Serious: Yes (Other)
  Sender: FDA-Public Use
  Company Number: BE-PFIZER INC-2020057783

PATIENT
  Age: 35 Year
  Sex: Female
  Weight: 90 kg

DRUGS (2)
  1. MIRENA [Concomitant]
     Active Substance: LEVONORGESTREL
     Dosage: UNK
     Route: 015
  2. DIFLUCAN [Suspect]
     Active Substance: FLUCONAZOLE
     Indication: VULVOVAGINAL CANDIDIASIS
     Dosage: 1 DF, SINGLE
     Route: 048

REACTIONS (8)
  - Dermatitis bullous [Recovered/Resolved]
  - Oral disorder [Recovered/Resolved]
  - Blister [Recovered/Resolved]
  - Palate injury [Recovered/Resolved]
  - Aphthous ulcer [Recovered/Resolved]
  - Erythema multiforme [Recovered/Resolved]
  - Rash vesicular [Recovered/Resolved]
  - Mucosal disorder [Recovered/Resolved]
